FAERS Safety Report 24108658 (Version 3)
Quarter: 2025Q1

REPORT INFORMATION
  Report Type: Spontaneous
  Country: JP (occurrence: JP)
  Receive Date: 20240718
  Receipt Date: 20250225
  Transmission Date: 20250409
  Serious: Yes (Other)
  Sender: ALEXION PHARMACEUTICALS
  Company Number: 2024A159605

PATIENT
  Age: 84 Year
  Weight: 49 kg

DRUGS (16)
  1. LYNPARZA [Suspect]
     Active Substance: OLAPARIB
     Indication: Prostate cancer
     Dosage: 300 MILLIGRAM, BID
  2. LYNPARZA [Suspect]
     Active Substance: OLAPARIB
     Dosage: 250 MILLIGRAM, BID
  3. PREDONINE [Concomitant]
     Active Substance: PREDNISOLONE
  4. METHYLCOBALAMIN [Concomitant]
     Active Substance: METHYLCOBALAMIN
     Indication: Neuropathy peripheral
  5. METHYLCOBALAMIN [Concomitant]
     Active Substance: METHYLCOBALAMIN
  6. METHYLCOBALAMIN [Concomitant]
     Active Substance: METHYLCOBALAMIN
  7. MIRABEGRON [Concomitant]
     Active Substance: MIRABEGRON
     Indication: Hypertonic bladder
  8. MIRABEGRON [Concomitant]
     Active Substance: MIRABEGRON
  9. MIRABEGRON [Concomitant]
     Active Substance: MIRABEGRON
  10. BROTIZOLAM [Concomitant]
     Active Substance: BROTIZOLAM
     Indication: Insomnia
  11. BROTIZOLAM [Concomitant]
     Active Substance: BROTIZOLAM
  12. BROTIZOLAM [Concomitant]
     Active Substance: BROTIZOLAM
     Dosage: .25 MILLIGRAM
  13. LEUPLIN [Concomitant]
     Active Substance: LEUPROLIDE ACETATE
     Indication: Prostate cancer
     Route: 065
  14. LEUPLIN [Concomitant]
     Active Substance: LEUPROLIDE ACETATE
     Route: 065
  15. LEUPLIN [Concomitant]
     Active Substance: LEUPROLIDE ACETATE
     Route: 065
  16. ZYTIGA [Concomitant]
     Active Substance: ABIRATERONE ACETATE
     Indication: Prostate cancer
     Route: 065

REACTIONS (1)
  - Interstitial lung disease [Recovering/Resolving]
